FAERS Safety Report 18798459 (Version 2)
Quarter: 2021Q1

REPORT INFORMATION
  Report Type: Other
  Country: FR (occurrence: FR)
  Receive Date: 20210128
  Receipt Date: 20210212
  Transmission Date: 20210419
  Serious: Yes (Hospitalization, Other)
  Sender: FDA-Public Use
  Company Number: FR-ASTELLAS-2021US003037

PATIENT
  Sex: Male
  Weight: 60 kg

DRUGS (6)
  1. ZECLAR [Suspect]
     Active Substance: CLARITHROMYCIN
     Indication: HELICOBACTER INFECTION
     Route: 048
     Dates: start: 20070808, end: 20070815
  2. AMBISOME [Suspect]
     Active Substance: AMPHOTERICIN B
     Indication: OESOPHAGEAL CANDIDIASIS
     Dosage: UNK UNK, UNKNOWN FREQ.
     Route: 048
     Dates: start: 200708, end: 200708
  3. AMOXICILLINE [AMOXICILLIN] [Suspect]
     Active Substance: AMOXICILLIN
     Indication: HELICOBACTER INFECTION
     Dosage: 1 G, QD
     Route: 048
     Dates: start: 20070808, end: 20070815
  4. ESOMEPRAZOLE. [Suspect]
     Active Substance: ESOMEPRAZOLE MAGNESIUM
     Indication: GASTRODUODENAL ULCER
     Route: 048
     Dates: start: 20070808, end: 20070815
  5. COLCHICINE. [Suspect]
     Active Substance: COLCHICINE
     Indication: ARTHRALGIA
     Dosage: UNK UNK, UNKNOWN FREQ.
     Route: 048
     Dates: start: 20070716, end: 20070817
  6. FLUINDIONE [Concomitant]
     Active Substance: FLUINDIONE
     Indication: PRODUCT USED FOR UNKNOWN INDICATION
     Dosage: UNK UNK, UNKNOWN FREQ.
     Route: 065

REACTIONS (5)
  - Inflammation [Unknown]
  - General physical condition abnormal [Unknown]
  - Pancytopenia [Recovered/Resolved]
  - Dyspnoea [Unknown]
  - Pyrexia [Unknown]

NARRATIVE: CASE EVENT DATE: 20170817
